FAERS Safety Report 24602851 (Version 1)
Quarter: 2024Q4

REPORT INFORMATION
  Report Type: Other
  Country: CN (occurrence: CN)
  Receive Date: 20241111
  Receipt Date: 20241111
  Transmission Date: 20250115
  Serious: Yes (Death, Hospitalization)
  Sender: ANI
  Company Number: CN-ANIPHARMA-012764

PATIENT
  Age: 61 Year
  Sex: Female

DRUGS (12)
  1. CYCLOPHOSPHAMIDE [Suspect]
     Active Substance: CYCLOPHOSPHAMIDE
     Indication: Acute leukaemia
     Dosage: VDCP REGIMEN
  2. CYTARABINE [Concomitant]
     Active Substance: CYTARABINE
     Indication: Acute leukaemia
     Dosage: 2 CYCLES
  3. DEXAMETHASONE [Concomitant]
     Active Substance: DEXAMETHASONE
     Indication: Acute leukaemia
     Dosage: 2 CYCLES
  4. VINDESINE [Concomitant]
     Active Substance: VINDESINE
     Indication: Acute leukaemia
     Dosage: 2 CYCLES
  5. DAUNORUBICIN [Concomitant]
     Active Substance: DAUNORUBICIN
     Indication: Acute leukaemia
     Dosage: 2 CYCLES
  6. VINCRISTINE [Concomitant]
     Active Substance: VINCRISTINE
     Indication: Acute leukaemia
     Dosage: VDCP REGIMEN
  7. PREDNISONE [Concomitant]
     Active Substance: PREDNISONE
     Indication: Acute leukaemia
     Dosage: VDCP REGIMEN
  8. ETOPOSIDE [Concomitant]
     Active Substance: ETOPOSIDE
     Indication: Acute leukaemia
  9. VENETOCLAX [Concomitant]
     Active Substance: VENETOCLAX
     Indication: Acute leukaemia
  10. DECITABINE [Concomitant]
     Active Substance: DECITABINE
     Indication: Acute leukaemia
     Dosage: 25MG ON DAY 1-5 DAYS
  11. GILTERITINIB [Concomitant]
     Active Substance: GILTERITINIB
     Indication: Acute leukaemia
     Dosage: 120MG ONCE A DAY ON DAY 1-10
  12. FLUDARABINE [Concomitant]
     Active Substance: FLUDARABINE PHOSPHATE
     Indication: Acute leukaemia

REACTIONS (1)
  - Drug ineffective [Fatal]
